FAERS Safety Report 6025282-4 (Version None)
Quarter: 2008Q4

REPORT INFORMATION
  Report Type: 
  Country: None (occurrence: None)
  Receive Date: 20081231
  Receipt Date: 20081222
  Transmission Date: 20090506
  Serious: Yes (Hospitalization)
  Sender: FDA-Public Use
  Company Number: PHHY2008GB33041

PATIENT
  Sex: Female

DRUGS (2)
  1. CLOZARIL [Suspect]
     Indication: SCHIZOPHRENIA
     Dosage: UNK
     Dates: start: 20020410, end: 20081216
  2. CLOZARIL [Suspect]
     Dosage: UNK
     Dates: start: 20081218

REACTIONS (2)
  - BRONCHOPNEUMONIA [None]
  - RENAL IMPAIRMENT [None]
